FAERS Safety Report 20403179 (Version 1)
Quarter: 2022Q1

REPORT INFORMATION
  Report Type: Spontaneous
  Country: DE (occurrence: DE)
  Receive Date: 20220131
  Receipt Date: 20220131
  Transmission Date: 20220423
  Serious: Yes (Other)
  Sender: FDA-Public Use
  Company Number: DE-NOVOPROD-877246

PATIENT
  Age: 14 Year
  Sex: Male
  Weight: 61 kg

DRUGS (3)
  1. NOVORAPID [Suspect]
     Active Substance: INSULIN ASPART
     Indication: Type 1 diabetes mellitus
     Dosage: 80 IU, QD
     Route: 058
     Dates: start: 201705
  2. NOVORAPID [Suspect]
     Active Substance: INSULIN ASPART
     Dosage: 80 IU, QD
     Route: 058
     Dates: start: 202012, end: 20211215
  3. NOVORAPID [Suspect]
     Active Substance: INSULIN ASPART
     Dosage: MILD INCREASED
     Route: 058

REACTIONS (5)
  - Blood ketone body [Recovered/Resolved]
  - Blood glucose increased [Recovered/Resolved]
  - Product physical issue [Unknown]
  - Product physical issue [Unknown]
  - Product leakage [Unknown]

NARRATIVE: CASE EVENT DATE: 20211212
